FAERS Safety Report 9308271 (Version 2)
Quarter: 2013Q3

REPORT INFORMATION
  Report Type: Report from Study
  Country: AU (occurrence: AU)
  Receive Date: 20130524
  Receipt Date: 20130710
  Transmission Date: 20140515
  Serious: Yes (Other)
  Sender: FDA-Public Use
  Company Number: PHHY2013AU046427

PATIENT
  Age: 72 Year
  Sex: Female

DRUGS (4)
  1. AFINITOR [Suspect]
     Indication: BREAST CANCER METASTATIC
     Dosage: 10 MG, DAILY
     Route: 048
     Dates: start: 20130314, end: 20130404
  2. AFINITOR [Suspect]
     Dosage: 5 MG
     Route: 048
     Dates: start: 20130703
  3. EXEMESTANE [Concomitant]
     Route: 048
     Dates: start: 20130314
  4. ENDONE [Concomitant]
     Indication: PAIN
     Dosage: LONG TERM
     Route: 048

REACTIONS (5)
  - Hepatic enzyme abnormal [Recovering/Resolving]
  - Mouth ulceration [Recovered/Resolved]
  - Hepatic lesion [Unknown]
  - Fatigue [Unknown]
  - Decreased appetite [Unknown]
